FAERS Safety Report 13935987 (Version 1)
Quarter: 2017Q3

REPORT INFORMATION
  Report Type: Spontaneous
  Country: US (occurrence: US)
  Receive Date: 20170904
  Receipt Date: 20170904
  Transmission Date: 20171127
  Serious: Yes (Disabling)
  Sender: FDA-Public Use
  Company Number: None

PATIENT
  Age: 67 Year
  Sex: Female
  Weight: 103.5 kg

DRUGS (11)
  1. LEVAQUIN [Suspect]
     Active Substance: LEVOFLOXACIN
     Indication: CELLULITIS
     Dosage: EVERY 8 HOURS INTRAVENOUS (NOT OTHERWISE SPECIFIED)
     Route: 042
  2. KLOR-CON [Concomitant]
     Active Substance: POTASSIUM CHLORIDE
  3. GABAPENTIN. [Concomitant]
     Active Substance: GABAPENTIN
  4. TENS UNIT [Concomitant]
  5. VERAPAMIL [Concomitant]
     Active Substance: VERAPAMIL HYDROCHLORIDE
  6. VITAMIN D [Concomitant]
     Active Substance: CHOLECALCIFEROL
  7. PROBIOTIC [Concomitant]
     Active Substance: PROBIOTICS NOS
  8. ALLOPURINOL. [Concomitant]
     Active Substance: ALLOPURINOL
  9. HYDROCHLORTHYAZIDE [Concomitant]
  10. VITAMIN B COMPLEX [Concomitant]
     Active Substance: CYANOCOBALAMIN\DEXPANTHENOL\NIACINAMIDE\PYRIDOXINE HYDROCHLORIDE\RIBOFLAVIN 5^-PHOSPHATE SODIUM\THIAMINE HYDROCHLORIDE\VITAMIN B COMPLEX
  11. MAGNESIUM GLYCINATE [Concomitant]
     Active Substance: MAGNESIUM GLYCINATE

REACTIONS (3)
  - Neuropathy peripheral [None]
  - Nerve compression [None]
  - Toxicity to various agents [None]

NARRATIVE: CASE EVENT DATE: 19970101
